FAERS Safety Report 23769773 (Version 5)
Quarter: 2024Q2

REPORT INFORMATION
  Report Type: Spontaneous
  Country: FR (occurrence: FR)
  Receive Date: 20240422
  Receipt Date: 20240514
  Transmission Date: 20240716
  Serious: Yes (Hospitalization, Other)
  Sender: FDA-Public Use
  Company Number: FR-LESVI-2024001674

PATIENT
  Age: 38 Year
  Sex: Male

DRUGS (9)
  1. MORPHINE SULFATE [Suspect]
     Active Substance: MORPHINE SULFATE
     Indication: Kyphoscoliosis
     Dosage: 20 MILLIGRAM
     Route: 065
     Dates: start: 2017
  2. MORPHINE SULFATE [Suspect]
     Active Substance: MORPHINE SULFATE
     Dosage: 40 MILLIGRAM
     Route: 065
     Dates: start: 2017
  3. PERICIAZINE [Suspect]
     Active Substance: PERICIAZINE
     Indication: Anxiety
     Dosage: 40 DROP, QD
     Route: 048
     Dates: start: 20240324, end: 20240406
  4. PERICIAZINE [Suspect]
     Active Substance: PERICIAZINE
     Indication: Sleep disorder
     Dosage: 10 DROP, QD
     Route: 048
     Dates: start: 2009
  5. PERICIAZINE [Suspect]
     Active Substance: PERICIAZINE
     Dosage: 40 DROPS PER DAY
     Route: 048
     Dates: start: 2009
  6. CYAMEMAZINE [Concomitant]
     Active Substance: CYAMEMAZINE
     Indication: Product used for unknown indication
     Dosage: UNK
     Route: 048
  7. LORMETAZEPAM [Concomitant]
     Active Substance: LORMETAZEPAM
     Indication: Insomnia
     Dosage: UNK
     Route: 048
  8. ZOPICLONE [Concomitant]
     Active Substance: ZOPICLONE
     Indication: Insomnia
     Dosage: UNK
     Route: 048
  9. VALIUM [Concomitant]
     Active Substance: DIAZEPAM
     Indication: Product used for unknown indication
     Dosage: UNK
     Route: 048

REACTIONS (12)
  - Cushing^s syndrome [Recovered/Resolved]
  - Pituitary tumour benign [Recovered/Resolved]
  - Disability [Unknown]
  - Weight increased [Not Recovered/Not Resolved]
  - Nausea [Not Recovered/Not Resolved]
  - Product use in unapproved indication [Unknown]
  - Kyphoscoliosis [Not Recovered/Not Resolved]
  - Constipation [Not Recovered/Not Resolved]
  - Gait disturbance [Not Recovered/Not Resolved]
  - Haemorrhoids [Recovered/Resolved]
  - Spinal operation [Not Recovered/Not Resolved]
  - Nausea [Not Recovered/Not Resolved]

NARRATIVE: CASE EVENT DATE: 20090101
